FAERS Safety Report 12596325 (Version 1)
Quarter: 2016Q3

REPORT INFORMATION
  Report Type: Spontaneous
  Country: MY (occurrence: MY)
  Receive Date: 20160727
  Receipt Date: 20160727
  Transmission Date: 20161109
  Serious: Yes (Death, Hospitalization, Other)
  Sender: FDA-Public Use
  Company Number: MY-009507513-1607MYS010477

PATIENT
  Sex: Male

DRUGS (1)
  1. KEYTRUDA [Suspect]
     Active Substance: PEMBROLIZUMAB
     Indication: NON-SMALL CELL LUNG CANCER
     Dosage: ROUTE: INFUSION
     Dates: start: 20160409

REACTIONS (2)
  - Choking [Fatal]
  - Foreign body aspiration [Fatal]

NARRATIVE: CASE EVENT DATE: 20160531
